FAERS Safety Report 6955580-9 (Version None)
Quarter: 2010Q3

REPORT INFORMATION
  Report Type: 
  Country: None (occurrence: None)
  Receive Date: 20100826
  Receipt Date: 20100826
  Transmission Date: 20110219
  Serious: Yes (Other)
  Sender: FDA-Public Use
  Company Number: None

PATIENT
  Age: 46 Year
  Sex: Female
  Weight: 100.2449 kg

DRUGS (6)
  1. FERAHEME [Suspect]
     Indication: ANAEMIA
     Dosage: 510 MG ONCE IV BOLUS
     Route: 040
     Dates: start: 20100823, end: 20100823
  2. LISINOPRIL [Concomitant]
  3. LEVOTHYROXINE [Concomitant]
  4. ADVAIR DISKUS 100/50 [Concomitant]
  5. ERGOCALCIFEROL [Concomitant]
  6. MULTI-VITAMIN [Concomitant]

REACTIONS (5)
  - DYSGEUSIA [None]
  - NASAL CONGESTION [None]
  - NASAL OEDEMA [None]
  - SINUS DISORDER [None]
  - UPPER-AIRWAY COUGH SYNDROME [None]
